FAERS Safety Report 8578606-8 (Version None)
Quarter: 2012Q3

REPORT INFORMATION
  Report Type: 
  Country: None (occurrence: None)
  Receive Date: 20120808
  Receipt Date: 20120731
  Transmission Date: 20120928
  Serious: Yes (Hospitalization)
  Sender: FDA-Public Use
  Company Number: JP-ASTELLAS-2012JP006900

PATIENT
  Age: 76 Year
  Sex: Female

DRUGS (1)
  1. MYRBETRIQ [Suspect]
     Dosage: 25 MG, UNKNOWN/D
     Route: 048

REACTIONS (1)
  - HYPERTHERMIA [None]
